FAERS Safety Report 4361279-8 (Version None)
Quarter: 2004Q2

REPORT INFORMATION
  Report Type: 
  Country: None (occurrence: None)
  Receive Date: 20040520
  Receipt Date: 20040417
  Transmission Date: 20050107
  Serious: Yes (Hospitalization)
  Sender: FDA-Public Use
  Company Number: JP-GLAXOSMITHKLINE-B0330514A

PATIENT
  Age: 39 Year
  Sex: Female

DRUGS (4)
  1. PAXIL [Suspect]
     Indication: DEPRESSION
     Route: 048
     Dates: start: 20040228, end: 20040409
  2. DEPAS [Concomitant]
     Indication: DEPRESSION
     Dosage: .5MG TWICE PER DAY
     Route: 048
     Dates: start: 20040228, end: 20040402
  3. GASMOTIN [Suspect]
     Indication: DEPRESSION
     Dosage: 2.5MG TWICE PER DAY
     Route: 048
     Dates: start: 20040228, end: 20040402
  4. RIZE [Suspect]
     Indication: DEPRESSION
     Dosage: 10MG PER DAY
     Route: 048
     Dates: start: 20040228, end: 20040402

REACTIONS (5)
  - ALANINE AMINOTRANSFERASE INCREASED [None]
  - ASPARTATE AMINOTRANSFERASE INCREASED [None]
  - BLOOD LACTATE DEHYDROGENASE INCREASED [None]
  - GAMMA-GLUTAMYLTRANSFERASE INCREASED [None]
  - HEPATITIS ACUTE [None]
